FAERS Safety Report 6911017-7 (Version None)
Quarter: 2010Q3

REPORT INFORMATION
  Report Type: 
  Country: None (occurrence: None)
  Receive Date: 20100806
  Receipt Date: 20100729
  Transmission Date: 20110219
  Serious: Yes (Other)
  Sender: FDA-Public Use
  Company Number: A0874087A

PATIENT
  Age: 8 Year
  Sex: Male

DRUGS (4)
  1. ZANTAC [Suspect]
     Dosage: 3ML THREE TIMES PER DAY
     Route: 048
     Dates: start: 20081101
  2. INDOCIN [Suspect]
     Dosage: 5.5ML THREE TIMES PER DAY
     Route: 048
     Dates: start: 20081101
  3. METHOTREXATE [Suspect]
     Dosage: 25MG WEEKLY
     Route: 058
     Dates: start: 20090901
  4. ADALIMUMAB [Suspect]
     Dosage: 40MG EVERY TWO WEEKS
     Route: 058
     Dates: start: 20100201

REACTIONS (4)
  - HEADACHE [None]
  - NEUROLOGICAL SYMPTOM [None]
  - TIC [None]
  - VOMITING [None]
